FAERS Safety Report 10563614 (Version 1)
Quarter: 2014Q4

REPORT INFORMATION
  Report Type: Report from Study
  Country: US (occurrence: US)
  Receive Date: 20141104
  Receipt Date: 20141104
  Transmission Date: 20150529
  Serious: Yes (Hospitalization, Other)
  Sender: FDA-Public Use
  Company Number: PHEH2014US021715

PATIENT
  Age: 45 Year
  Sex: Male
  Weight: 53.61 kg

DRUGS (1)
  1. TOBI PODHALER [Suspect]
     Active Substance: TOBRAMYCIN
     Indication: CYSTIC FIBROSIS
     Dosage: 112 MG, BID
     Route: 055

REACTIONS (3)
  - Culture positive [Unknown]
  - Sepsis [Unknown]
  - Chest discomfort [Unknown]

NARRATIVE: CASE EVENT DATE: 201403
